FAERS Safety Report 6444811-X (Version None)
Quarter: 2009Q4

REPORT INFORMATION
  Report Type: 
  Country: None (occurrence: None)
  Receive Date: 20091118
  Receipt Date: 20091105
  Transmission Date: 20100525
  Serious: Yes (Hospitalization, Other)
  Sender: FDA-Public Use
  Company Number: PHHY2009ES41934

PATIENT
  Age: 43 Year
  Sex: Male

DRUGS (5)
  1. CYCLOSPORINE [Suspect]
     Indication: HEART TRANSPLANT
  2. MYCOPHENOLATE MOFETIL [Suspect]
     Indication: HEART TRANSPLANT
  3. STEROIDS NOS [Suspect]
     Indication: HEART TRANSPLANT
  4. TACROLIMUS [Concomitant]
     Indication: LIVER TRANSPLANT
  5. TACROLIMUS [Concomitant]
     Indication: HEART TRANSPLANT

REACTIONS (20)
  - ABDOMINAL PAIN UPPER [None]
  - ACUTE HEPATIC FAILURE [None]
  - ACUTE RESPIRATORY DISTRESS SYNDROME [None]
  - BILE DUCT STENT INSERTION [None]
  - BILIARY ANASTOMOSIS COMPLICATION [None]
  - CARDIAC DISORDER [None]
  - COAGULOPATHY [None]
  - ENCEPHALOPATHY [None]
  - HEPATIC NECROSIS [None]
  - HEPATITIS VIRAL [None]
  - HERPES ZOSTER [None]
  - LIVER TRANSPLANT [None]
  - MECHANICAL VENTILATION [None]
  - MULTI-ORGAN FAILURE [None]
  - NAUSEA [None]
  - RASH MACULO-PAPULAR [None]
  - RASH PUSTULAR [None]
  - SKIN LESION [None]
  - VIRAL TEST POSITIVE [None]
  - VOMITING [None]
